FAERS Safety Report 7149100-6 (Version None)
Quarter: 2010Q4

REPORT INFORMATION
  Report Type: 
  Country: None (occurrence: None)
  Receive Date: 20101209
  Receipt Date: 20101116
  Transmission Date: 20110411
  Serious: Yes (Other)
  Sender: FDA-Public Use
  Company Number: US-BAYER-201023571NA

PATIENT
  Sex: Female
  Weight: 72.727 kg

DRUGS (8)
  1. YAZ [Suspect]
     Route: 048
     Dates: start: 20061116, end: 20061213
  2. YASMIN [Suspect]
     Indication: ORAL CONTRACEPTION
     Route: 048
     Dates: start: 20060127, end: 20060914
  3. YASMIN [Suspect]
     Route: 048
     Dates: start: 20071029, end: 20080510
  4. OCELLA [Suspect]
     Route: 048
     Dates: start: 20080308, end: 20090304
  5. LEVOTHYROXINE [Concomitant]
     Indication: HYPOTHYROIDISM
     Route: 048
     Dates: start: 20040101
  6. CLARITIN [Concomitant]
     Route: 048
     Dates: start: 20080101
  7. SPIRIVA [Concomitant]
     Indication: BRONCHITIS
  8. SINGULAIR [Concomitant]

REACTIONS (11)
  - ARRHYTHMIA [None]
  - BRONCHITIS [None]
  - CHEST DISCOMFORT [None]
  - DYSPEPSIA [None]
  - DYSPNOEA [None]
  - HAEMORRHAGE [None]
  - INFLUENZA [None]
  - SINUSITIS [None]
  - SLEEP APNOEA SYNDROME [None]
  - TACHYCARDIA [None]
  - WEIGHT INCREASED [None]
